FAERS Safety Report 24325503 (Version 1)
Quarter: 2024Q3

REPORT INFORMATION
  Report Type: Spontaneous
  Country: US (occurrence: US)
  Receive Date: 20240917
  Receipt Date: 20240917
  Transmission Date: 20241017
  Serious: Yes (Other)
  Sender: AMGEN
  Company Number: US-AMGEN-USASP2024181290

PATIENT

DRUGS (1)
  1. BLINATUMOMAB [Suspect]
     Active Substance: BLINATUMOMAB
     Indication: B-cell lymphoma refractory
     Dosage: UNK
     Route: 065

REACTIONS (10)
  - Immune effector cell-associated neurotoxicity syndrome [Unknown]
  - Cytokine release syndrome [Unknown]
  - Fatigue [Unknown]
  - Dermatitis [Unknown]
  - Gastrointestinal toxicity [Unknown]
  - Dry mouth [Unknown]
  - Radiation injury [Unknown]
  - Toxicity to various agents [Unknown]
  - Pain [Unknown]
  - Nausea [Unknown]
